FAERS Safety Report 10895805 (Version 4)
Quarter: 2015Q2

REPORT INFORMATION
  Report Type: Report from Study
  Country: US (occurrence: US)
  Receive Date: 20150307
  Receipt Date: 20150518
  Transmission Date: 20150821
  Serious: Yes (Other)
  Sender: FDA-Public Use
  Company Number: US-BIOGENIDEC-2015BI027819

PATIENT
  Age: 63 Year
  Sex: Female

DRUGS (3)
  1. AVONEX [Suspect]
     Active Substance: INTERFERON BETA-1A
     Indication: MULTIPLE SCLEROSIS
     Route: 030
  2. AVONEX [Suspect]
     Active Substance: INTERFERON BETA-1A
     Indication: MULTIPLE SCLEROSIS
     Route: 030
     Dates: start: 20100101
  3. AVONEX [Suspect]
     Active Substance: INTERFERON BETA-1A
     Indication: MULTIPLE SCLEROSIS
     Route: 030
     Dates: start: 20111024, end: 20150401

REACTIONS (5)
  - Gastric disorder [Recovered/Resolved]
  - Faeces discoloured [Recovered/Resolved]
  - Blood urine present [Recovered/Resolved]
  - Pancreatic carcinoma [Not Recovered/Not Resolved]
  - Pancreatic duct obstruction [Unknown]

NARRATIVE: CASE EVENT DATE: 201501
